FAERS Safety Report 11276297 (Version 1)
Quarter: 2015Q3

REPORT INFORMATION
  Report Type: Spontaneous
  Country: NL (occurrence: NL)
  Receive Date: 20150716
  Receipt Date: 20150716
  Transmission Date: 20151125
  Serious: Yes (Hospitalization)
  Sender: FDA-Public Use
  Company Number: NL-TEVA-552037ISR

PATIENT
  Sex: Female

DRUGS (2)
  1. LABETALOL HCL [Suspect]
     Active Substance: LABETALOL HYDROCHLORIDE
     Dates: start: 201409, end: 201501
  2. LABETALOL HCL [Suspect]
     Active Substance: LABETALOL HYDROCHLORIDE
     Dosage: 200 MILLIGRAM DAILY;

REACTIONS (7)
  - Rash erythematous [Unknown]
  - Rash pruritic [Unknown]
  - Restlessness [Unknown]
  - Feeling abnormal [Unknown]
  - Blood pressure increased [Unknown]
  - Chest pain [Unknown]
  - Heart rate increased [Unknown]

NARRATIVE: CASE EVENT DATE: 201409
